FAERS Safety Report 6125248-X (Version None)
Quarter: 2009Q1

REPORT INFORMATION
  Report Type: 
  Country: None (occurrence: None)
  Receive Date: 20090319
  Receipt Date: 20090319
  Transmission Date: 20090719
  Serious: No
  Sender: FDA-Public Use
  Company Number: None

PATIENT

DRUGS (2)
  1. XYZAL [Suspect]
  2. KEPPRA [Suspect]

REACTIONS (1)
  - INTERCEPTED MEDICATION ERROR [None]
